FAERS Safety Report 9429164 (Version 2)
Quarter: 2013Q3

REPORT INFORMATION
  Report Type: Spontaneous
  Country: US (occurrence: US)
  Receive Date: 20130730
  Receipt Date: 20130801
  Transmission Date: 20140515
  Serious: No
  Sender: FDA-Public Use
  Company Number: US-BAYER-2013-085872

PATIENT
  Age: 80 Year
  Sex: Female

DRUGS (3)
  1. CLIMARA [Suspect]
     Indication: ASTHENIA
     Route: 062
  2. ESTRADIOL HEMIHYDRATE (PATCH) [Suspect]
     Indication: HYSTERECTOMY
     Dosage: 1 DF, OW
     Route: 062
     Dates: start: 201302
  3. ESTROGEN [Suspect]

REACTIONS (4)
  - Therapeutic response unexpected [None]
  - Application site rash [None]
  - Blood pressure increased [None]
  - Dizziness [None]
